FAERS Safety Report 5420083-X (Version None)
Quarter: 2007Q3

REPORT INFORMATION
  Report Type: 
  Country: None (occurrence: None)
  Receive Date: 20070820
  Receipt Date: 20070808
  Transmission Date: 20080115
  Serious: Yes (Hospitalization)
  Sender: FDA-Public Use
  Company Number: DK-SHR-DK-2007-007754

PATIENT
  Age: 69 Year
  Sex: Female

DRUGS (1)
  1. MENOSTAR [Suspect]
     Dosage: E2: 0.014 MG/DAY
     Route: 062
     Dates: start: 20040506, end: 20070204

REACTIONS (1)
  - BILE DUCT CANCER [None]
